FAERS Safety Report 15402879 (Version 2)
Quarter: 2018Q3

REPORT INFORMATION
  Report Type: Spontaneous
  Country: US (occurrence: US)
  Receive Date: 20180919
  Receipt Date: 20180926
  Transmission Date: 20181010
  Serious: Yes (Other)
  Sender: FDA-Public Use
  Company Number: US-DSJP-DSU-2017-143952

PATIENT

DRUGS (1)
  1. BENICAR [Suspect]
     Active Substance: OLMESARTAN MEDOXOMIL
     Indication: PRODUCT USED FOR UNKNOWN INDICATION
     Dosage: 40 MG, QD
     Route: 048
     Dates: start: 20070101, end: 20170101

REACTIONS (11)
  - Cholelithiasis [Recovered/Resolved]
  - Irritable bowel syndrome [Unknown]
  - Gastrooesophageal reflux disease [Not Recovered/Not Resolved]
  - Inguinal hernia [Unknown]
  - Small intestinal obstruction [Not Recovered/Not Resolved]
  - Sprue-like enteropathy [Recovered/Resolved]
  - Ileus [Unknown]
  - Haemorrhoids [Unknown]
  - Polyp [Recovered/Resolved]
  - Renal impairment [Unknown]
  - Diverticulum intestinal [Not Recovered/Not Resolved]

NARRATIVE: CASE EVENT DATE: 20080101
